FAERS Safety Report 17146921 (Version 1)
Quarter: 2019Q4

REPORT INFORMATION
  Report Type: Spontaneous
  Country: IT (occurrence: IT)
  Receive Date: 20191212
  Receipt Date: 20191212
  Transmission Date: 20200122
  Serious: Yes (Other)
  Sender: FDA-Public Use
  Company Number: NVSC2019IT061551

PATIENT
  Age: 16 Year
  Sex: Male

DRUGS (3)
  1. PARACETAMOL [Concomitant]
     Active Substance: ACETAMINOPHEN
     Indication: PRODUCT USED FOR UNKNOWN INDICATION
     Dosage: 1 G
     Route: 048
     Dates: start: 20190927, end: 20190930
  2. PANTOPRAZOLE [Concomitant]
     Active Substance: PANTOPRAZOLE
     Indication: PRODUCT USED FOR UNKNOWN INDICATION
     Dosage: 40 MG
     Route: 048
     Dates: start: 20190927, end: 20191007
  3. CIPROFLOXACIN. [Suspect]
     Active Substance: CIPROFLOXACIN
     Indication: THYROGLOSSAL CYST EXCISION
     Dosage: 500 MG, QD
     Route: 048
     Dates: start: 20190927, end: 20190930

REACTIONS (1)
  - Gastritis [Recovering/Resolving]

NARRATIVE: CASE EVENT DATE: 20191001
